FAERS Safety Report 6093350-7 (Version None)
Quarter: 2009Q1

REPORT INFORMATION
  Report Type: 
  Country: None (occurrence: None)
  Receive Date: 20090226
  Receipt Date: 20090212
  Transmission Date: 20090719
  Serious: No
  Sender: FDA-Public Use
  Company Number: FI-DENTSPLY-2009-0007-EUR

PATIENT
  Sex: Female

DRUGS (4)
  1. PRILOCAIN OCTA [Suspect]
     Indication: LOCAL ANAESTHESIA
     Dates: start: 20090105, end: 20090105
  2. MALARONE [Suspect]
     Indication: MALARIA
     Dates: start: 20081218, end: 20090111
  3. ZANIDIP [Concomitant]
     Indication: HYPERTENSION
  4. ORLOC [Concomitant]
     Indication: HYPERTENSION
     Route: 048

REACTIONS (3)
  - DRUG INTERACTION [None]
  - INJECTION SITE HAEMORRHAGE [None]
  - SKIN EXFOLIATION [None]
